FAERS Safety Report 7079823-9 (Version None)
Quarter: 2010Q4

REPORT INFORMATION
  Report Type: 
  Country: None (occurrence: None)
  Receive Date: 20101102
  Receipt Date: 20101022
  Transmission Date: 20110411
  Serious: Yes (Hospitalization, Other)
  Sender: FDA-Public Use
  Company Number: US-BAXTER-2010BH024435

PATIENT
  Age: 7 Year
  Sex: Male
  Weight: 34 kg

DRUGS (3)
  1. STERILE WATER FOR INJECTION IN PLASTIC CONTAINER [Suspect]
     Indication: MEDICATION DILUTION
     Route: 042
     Dates: start: 20100923, end: 20100923
  2. STERILE WATER FOR INJECTION IN PLASTIC CONTAINER [Suspect]
     Indication: SEPSIS
     Route: 042
     Dates: start: 20100923, end: 20100923
  3. CEFTRIAXONE [Suspect]
     Indication: SEPSIS
     Route: 042
     Dates: start: 20100923, end: 20100923

REACTIONS (3)
  - CHILLS [None]
  - CRYING [None]
  - MALAISE [None]
